FAERS Safety Report 6394364-X (Version None)
Quarter: 2009Q4

REPORT INFORMATION
  Report Type: 
  Country: None (occurrence: None)
  Receive Date: 20091006
  Receipt Date: 20080529
  Transmission Date: 20100525
  Serious: Yes (Hospitalization, Other)
  Sender: FDA-Public Use
  Company Number: JPI-P-004235

PATIENT
  Age: 35 Year
  Sex: Male

DRUGS (2)
  1. XYREM [Suspect]
     Indication: CATAPLEXY
     Dosage: 4.5 MG (2.25 GM, 2 IN 1 D), ORAL
     Route: 048
     Dates: start: 20080426, end: 20080520
  2. AMITRIPTYLINE HYDROCHLORIDE (DROPS) [Concomitant]

REACTIONS (14)
  - AGITATION [None]
  - ANXIETY [None]
  - ARTHRALGIA [None]
  - DECREASED APPETITE [None]
  - DEPRESSION [None]
  - DIZZINESS [None]
  - DYSPHAGIA [None]
  - HEADACHE [None]
  - MUSCLE SPASMS [None]
  - MUSCULOSKELETAL PAIN [None]
  - PALPITATIONS [None]
  - STRESS [None]
  - URINARY BLADDER POLYP [None]
  - WEIGHT DECREASED [None]
